FAERS Safety Report 7793955-9 (Version None)
Quarter: 2011Q4

REPORT INFORMATION
  Report Type: 
  Country: None (occurrence: None)
  Receive Date: 20111004
  Receipt Date: 20110926
  Transmission Date: 20120403
  Serious: No
  Sender: FDA-Public Use
  Company Number: US-BIOGENIDEC-2011BI036896

PATIENT
  Age: 35 Year
  Sex: Female

DRUGS (2)
  1. TYSABRI [Suspect]
     Indication: MULTIPLE SCLEROSIS
     Route: 042
     Dates: start: 20101220
  2. TYSABRI [Suspect]
     Route: 042
     Dates: start: 20071105, end: 20090108

REACTIONS (4)
  - VIBRATORY SENSE INCREASED [None]
  - PARAESTHESIA [None]
  - PNEUMONIA [None]
  - POLYARTHRITIS [None]
